FAERS Safety Report 26087098 (Version 1)
Quarter: 2025Q4

REPORT INFORMATION
  Report Type: Spontaneous
  Country: CN (occurrence: CN)
  Receive Date: 20251125
  Receipt Date: 20251125
  Transmission Date: 20260118
  Serious: Yes (Other)
  Sender: NOVARTIS
  Company Number: CN-002147023-NVSC2025CN179861

PATIENT
  Age: 32 Year
  Sex: Male

DRUGS (6)
  1. CYCLOSPORINE [Suspect]
     Active Substance: CYCLOSPORINE
     Indication: Transplant rejection
     Dosage: UNK
     Route: 065
     Dates: start: 20231008
  2. MYCOPHENOLATE MOFETIL [Suspect]
     Active Substance: MYCOPHENOLATE MOFETIL
     Indication: Transplant rejection
     Dosage: UNK
     Route: 065
     Dates: start: 20231008
  3. METHOTREXATE [Suspect]
     Active Substance: METHOTREXATE
     Indication: Transplant rejection
     Dosage: UNK
     Route: 065
     Dates: start: 20231008
  4. BUSULFAN [Suspect]
     Active Substance: BUSULFAN
     Indication: Product used for unknown indication
     Dosage: 8 MG/KG
     Route: 065
     Dates: start: 20231008
  5. CYCLOPHOSPHAMIDE [Suspect]
     Active Substance: CYCLOPHOSPHAMIDE
     Indication: Product used for unknown indication
     Dosage: 8 MG/KG
     Route: 065
     Dates: start: 20231008
  6. THYMOCYTE IMMUNE GLOBULIN NOS [Suspect]
     Active Substance: THYMOCYTE IMMUNE GLOBULIN NOS
     Indication: Product used for unknown indication
     Dosage: 8 MG/KG
     Route: 065
     Dates: start: 20231008

REACTIONS (3)
  - Acute graft versus host disease [Recovering/Resolving]
  - Acute graft versus host disease in skin [Recovering/Resolving]
  - Acute graft versus host disease in intestine [Recovering/Resolving]
